FAERS Safety Report 7592738-2 (Version None)
Quarter: 2011Q3

REPORT INFORMATION
  Report Type: 
  Country: None (occurrence: None)
  Receive Date: 20110706
  Receipt Date: 20110629
  Transmission Date: 20111222
  Serious: Yes (Other)
  Sender: FDA-Public Use
  Company Number: US-PFIZER INC-2011145684

PATIENT
  Sex: Female

DRUGS (2)
  1. IMITREX [Concomitant]
     Dosage: UNK
  2. RELPAX [Suspect]
     Dosage: UNK

REACTIONS (1)
  - ATRIAL FIBRILLATION [None]
